FAERS Safety Report 17579584 (Version 1)
Quarter: 2020Q1

REPORT INFORMATION
  Report Type: Report from Study
  Country: IT (occurrence: IT)
  Receive Date: 20200325
  Receipt Date: 20200325
  Transmission Date: 20200409
  Serious: Yes (Hospitalization)
  Sender: FDA-Public Use
  Company Number: IT-ACCORD-177193

PATIENT
  Age: 66 Year
  Sex: Male
  Weight: 0 kg

DRUGS (7)
  1. CITALOPRAM [Concomitant]
     Active Substance: CITALOPRAM HYDROBROMIDE
     Dosage: STRENGTH: 40 MG/ML
     Route: 048
  2. LANTUS [Concomitant]
     Active Substance: INSULIN GLARGINE
     Route: 048
  3. ACETYLSALICYLIC ACID [Interacting]
     Active Substance: ASPIRIN
     Indication: HYPERTENSIVE HEART DISEASE
     Route: 048
  4. PANTOPRAZOLE AUROBINDO [Concomitant]
     Active Substance: PANTOPRAZOLE
     Dosage: STRENGTH: 20 MG
     Route: 048
  5. TAMSULOSIN/TAMSULOSIN HYDROCHLORIDE [Concomitant]
     Active Substance: TAMSULOSIN HYDROCHLORIDE
     Dosage: STRENGTH: 0.4 MG
     Route: 048
  6. BISOPROLOL TEVA [Concomitant]
     Active Substance: BISOPROLOL
     Dosage: STRENGTH: 5 MG
     Route: 048
  7. CLOPIDOGREL [Suspect]
     Active Substance: CLOPIDOGREL BISULFATE
     Indication: ATRIAL FIBRILLATION
     Route: 048

REACTIONS (4)
  - Subdural haemorrhage [Not Recovered/Not Resolved]
  - Perirenal haematoma [Not Recovered/Not Resolved]
  - Drug interaction [Unknown]
  - Ascites [Not Recovered/Not Resolved]

NARRATIVE: CASE EVENT DATE: 20191106
